FAERS Safety Report 5242540-1 (Version None)
Quarter: 2007Q1

REPORT INFORMATION
  Report Type: 
  Country: None (occurrence: None)
  Receive Date: 20070214
  Receipt Date: 20070206
  Transmission Date: 20070707
  Serious: Yes (Death, Other)
  Sender: FDA-Public Use
  Company Number: 163-21880-07011146

PATIENT
  Age: 75 Year
  Sex: Female

DRUGS (1)
  1. REVLIMID [Suspect]
     Indication: MULTIPLE MYELOMA
     Dosage: DAILY FOR 2 WEEKS ON THEM OFF 2
     Dates: start: 20061101, end: 20070101

REACTIONS (2)
  - AORTIC ANEURYSM [None]
  - CARDIAC ARREST [None]
